FAERS Safety Report 9015152 (Version 1)
Quarter: 2013Q1

REPORT INFORMATION
  Report Type: Spontaneous
  Country: DE (occurrence: DE)
  Receive Date: 20130116
  Receipt Date: 20130116
  Transmission Date: 20140127
  Serious: Yes (Life-Threatening, Hospitalization)
  Sender: FDA-Public Use
  Company Number: DE-009507513-1301DEU005463

PATIENT
  Age: 76 Year
  Sex: Male
  Weight: 90 kg

DRUGS (4)
  1. MIRTAZAPIN [Suspect]
     Indication: DEPRESSION
     Dosage: UNK
     Route: 048
     Dates: start: 2004, end: 20120810
  2. CEFUROXIME SODIUM [Suspect]
     Dosage: INSG.40TABLETTEN EINGENOMMEN
     Route: 048
  3. IBUFLAM [Suspect]
     Indication: ARTHRALGIA
     Dosage: 800 MG, UNK
     Route: 048
  4. MARCUMAR [Concomitant]
     Indication: THROMBOSIS
     Dosage: UNK
     Dates: start: 1989

REACTIONS (1)
  - Bone marrow failure [Not Recovered/Not Resolved]
